FAERS Safety Report 24210623 (Version 2)
Quarter: 2024Q3

REPORT INFORMATION
  Report Type: Spontaneous
  Country: AU (occurrence: AU)
  Receive Date: 20240814
  Receipt Date: 20240903
  Transmission Date: 20241017
  Serious: Yes (Death, Other)
  Sender: BAYER
  Company Number: AU-BAYER-2024A113287

PATIENT
  Age: 10 Year

DRUGS (1)
  1. REGORAFENIB [Suspect]
     Active Substance: REGORAFENIB
     Indication: Ewing^s sarcoma
     Dosage: 80 MG, QD
     Dates: start: 202404, end: 20240806

REACTIONS (5)
  - Ewing^s sarcoma [Fatal]
  - Thrombocytopenia [Not Recovered/Not Resolved]
  - Off label use [None]
  - Pain [Not Recovered/Not Resolved]
  - Nausea [Not Recovered/Not Resolved]

NARRATIVE: CASE EVENT DATE: 20240401
